FAERS Safety Report 4755071-X (Version None)
Quarter: 2005Q3

REPORT INFORMATION
  Report Type: 
  Country: None (occurrence: None)
  Receive Date: 20050825
  Receipt Date: 20050211
  Transmission Date: 20060218
  Serious: Yes (Hospitalization, Other)
  Sender: FDA-Public Use
  Company Number: 10289

PATIENT
  Age: 65 Year
  Sex: Male
  Weight: 62 kg

DRUGS (9)
  1. VINCRISTINE [Suspect]
     Indication: AMYLOIDOSIS
     Dosage: 0.4 MG DAILY IV
     Route: 042
     Dates: start: 20030421, end: 20030424
  2. VINCRISTINE [Suspect]
     Indication: AMYLOIDOSIS
     Dosage: 0.4 MG DAILY IV
     Route: 042
     Dates: start: 20030604, end: 20030607
  3. DOXORUBICIN [Suspect]
     Indication: AMYLOIDOSIS
     Dosage: 9 MG/M2 DAILY IV
     Route: 042
     Dates: start: 20030421, end: 20030424
  4. DOXORUBICIN [Suspect]
     Indication: AMYLOIDOSIS
     Dosage: 9 MG/M2 DAILY IV
     Route: 042
     Dates: start: 20030604, end: 20030607
  5. DEXAMETHASONE [Suspect]
     Indication: AMYLOIDOSIS
     Dosage: 40 MG DAILY IV
     Route: 042
     Dates: start: 20030421, end: 20030424
  6. DEXAMETHASONE [Suspect]
     Indication: AMYLOIDOSIS
     Dosage: 40 MG DAILY IV
     Route: 042
     Dates: start: 20030604, end: 20030607
  7. MELPHALAN [Suspect]
     Indication: AMYLOIDOSIS
     Dates: start: 20030930, end: 20031001
  8. ETOPOSIDE [Concomitant]
  9. GRANULOCYTE COLONY STIMULATING FACTOR [Concomitant]

REACTIONS (5)
  - CYTOMEGALOVIRUS INFECTION [None]
  - FLUID RETENTION [None]
  - GASTROINTESTINAL HAEMORRHAGE [None]
  - OEDEMA [None]
  - PLEURAL EFFUSION [None]
